FAERS Safety Report 9130113 (Version 1)
Quarter: 2013Q1

REPORT INFORMATION
  Report Type: Spontaneous
  Country: GB (occurrence: GB)
  Receive Date: 20130125
  Receipt Date: 20130125
  Transmission Date: 20140127
  Serious: Yes (Life-Threatening, Hospitalization)
  Sender: FDA-Public Use
  Company Number: PHHY2013GB006731

PATIENT
  Age: 76 Year
  Sex: Female

DRUGS (8)
  1. QUETIAPINE [Suspect]
     Indication: ANXIETY
     Dosage: 100 MG, QD
     Route: 048
     Dates: start: 20111128, end: 20121221
  2. BISOPROLOL [Concomitant]
     Dosage: 3.75 MG, QD
  3. PERINDOPRIL [Concomitant]
     Dosage: 8 MG, QD
  4. WARFARIN [Concomitant]
  5. ASPIRIN [Concomitant]
     Dosage: 75 MG, QD
  6. ZOPICLONE [Concomitant]
     Dosage: 3.75 MG, QD
  7. SIMVASTATIN [Concomitant]
     Dosage: 40 MG, QD
  8. SERTRALINE [Concomitant]
     Indication: DEPRESSION
     Dosage: 150 MG, QD

REACTIONS (10)
  - Sick sinus syndrome [Unknown]
  - Hypocalcaemia [Unknown]
  - Fatigue [Unknown]
  - Malaise [Unknown]
  - Cardiac arrest [Unknown]
  - Torsade de pointes [Unknown]
  - Dizziness [Unknown]
  - Long QT syndrome [Recovered/Resolved]
  - Ventricular tachycardia [Unknown]
  - Dyspnoea [Unknown]
